FAERS Safety Report 12640846 (Version 10)
Quarter: 2020Q2

REPORT INFORMATION
  Report Type: Spontaneous
  Country: US (occurrence: US)
  Receive Date: 20160810
  Receipt Date: 20200521
  Transmission Date: 20200713
  Serious: Yes (Hospitalization)
  Sender: FDA-Public Use
  Company Number: US-ACTELION-A-US2016-140310

PATIENT
  Sex: Female
  Weight: 77.1 kg

DRUGS (4)
  1. UPTRAVI [Suspect]
     Active Substance: SELEXIPAG
     Dosage: 1000 MCG, BID
     Route: 048
     Dates: start: 20160621
  2. UPTRAVI [Suspect]
     Active Substance: SELEXIPAG
     Indication: PULMONARY ARTERIAL HYPERTENSION
     Dosage: 1600 MCG, BID
     Route: 048
     Dates: end: 20200416
  3. OPSUMIT [Suspect]
     Active Substance: MACITENTAN
     Indication: PULMONARY ARTERIAL HYPERTENSION
     Dosage: 10 MG, QD
     Route: 048
  4. ASPIRIN. [Concomitant]
     Active Substance: ASPIRIN

REACTIONS (13)
  - Asthenia [Unknown]
  - Malaise [Unknown]
  - Pulmonary arterial hypertension [Unknown]
  - Haematoma [Unknown]
  - Therapy change [Unknown]
  - Pericardial effusion [Unknown]
  - Renal impairment [Unknown]
  - Dyspnoea [Unknown]
  - Peripheral swelling [Unknown]
  - Joint swelling [Unknown]
  - Feeling abnormal [Not Recovered/Not Resolved]
  - Myalgia [Unknown]
  - Dyspnoea at rest [Not Recovered/Not Resolved]
